FAERS Safety Report 4522562-6 (Version None)
Quarter: 2004Q4

REPORT INFORMATION
  Report Type: 
  Country: None (occurrence: None)
  Receive Date: 20041207
  Receipt Date: 20041127
  Transmission Date: 20050328
  Serious: Yes (Hospitalization)
  Sender: FDA-Public Use
  Company Number: 2004100103

PATIENT
  Age: 19 Year
  Sex: Female
  Weight: 78.4723 kg

DRUGS (1)
  1. DEPO-PROVERA [Suspect]
     Indication: MENORRHAGIA
     Dosage: 150 MG (150 MG, EVERY 10-13 WEEKS, 1ST INJECTION), INTRAMUSCULAR
     Route: 030
     Dates: start: 20040701, end: 20040701

REACTIONS (2)
  - METRORRHAGIA [None]
  - NEPHROLITHIASIS [None]
